FAERS Safety Report 22368995 (Version 1)
Quarter: 2023Q2

REPORT INFORMATION
  Report Type: Spontaneous
  Country: RO (occurrence: RO)
  Receive Date: 20230525
  Receipt Date: 20230525
  Transmission Date: 20230722
  Serious: Yes (Hospitalization)
  Sender: FDA-Public Use
  Company Number: RO-MLMSERVICE-20230510-4282371-1

PATIENT
  Age: 64 Year
  Sex: Male

DRUGS (4)
  1. HYDROCORTISONE [Suspect]
     Active Substance: HYDROCORTISONE
     Indication: Adrenal insufficiency
     Route: 048
  2. ESOMEPRAZOLE [Concomitant]
     Active Substance: ESOMEPRAZOLE
     Indication: Helicobacter infection
     Route: 065
  3. ESOMEPRAZOLE [Concomitant]
     Active Substance: ESOMEPRAZOLE
     Indication: Duodenal ulcer
  4. ROSUVASTATIN [Concomitant]
     Active Substance: ROSUVASTATIN
     Indication: Hypercholesterolaemia
     Dosage: IN THE EVENING
     Route: 065

REACTIONS (5)
  - Meningitis tuberculous [Recovered/Resolved]
  - Meningoencephalitis bacterial [Recovered/Resolved]
  - Candida infection [Recovered/Resolved]
  - Sphingomonas paucimobilis infection [Recovered/Resolved]
  - Meningitis bacterial [Recovered/Resolved]
